FAERS Safety Report 22727666 (Version 11)
Quarter: 2024Q2

REPORT INFORMATION
  Report Type: Other
  Country: RO (occurrence: RO)
  Receive Date: 20230720
  Receipt Date: 20240517
  Transmission Date: 20240716
  Serious: Yes (Life-Threatening, Hospitalization, Other)
  Sender: FDA-Public Use
  Company Number: None

PATIENT
  Age: 71 Year
  Sex: Male

DRUGS (25)
  1. FUROSEMIDE [Interacting]
     Active Substance: FUROSEMIDE
     Indication: Myocardial ischaemia
     Dosage: UNK, BIWEEKLY (TWICE WEEKLY), TWICE WEEKLY, LOOP DIURETIC
     Route: 065
  2. FUROSEMIDE [Interacting]
     Active Substance: FUROSEMIDE
     Indication: Product used for unknown indication
     Dosage: 1 DOSAGE FORM, ONCE A WEEK
     Route: 065
  3. FUROSEMIDE [Interacting]
     Active Substance: FUROSEMIDE
     Dosage: 2 DOSAGE FORM, ONCE A WEEK
     Route: 065
  4. GABAPENTIN [Interacting]
     Active Substance: GABAPENTIN
     Indication: Product used for unknown indication
     Dosage: UNK UNK, QD, DAILY USE, ANTIEPILEPTIC
     Route: 065
  5. GABAPENTIN [Interacting]
     Active Substance: GABAPENTIN
     Dosage: UNK
     Route: 065
  6. IBUPROFEN [Interacting]
     Active Substance: IBUPROFEN
     Indication: Arthralgia
     Dosage: UNK
     Route: 065
  7. IBUPROFEN [Interacting]
     Active Substance: IBUPROFEN
     Indication: Product used for unknown indication
     Dosage: UNK UNK, QD, DAILY USE, NSAID
     Route: 065
  8. AMLODIPINE [Interacting]
     Active Substance: AMLODIPINE BESYLATE
     Indication: Product used for unknown indication
     Dosage: UNK, CALCIUM CHANNEL BLOCKER
     Route: 065
  9. INDAPAMIDE [Interacting]
     Active Substance: INDAPAMIDE
     Indication: Myocardial ischaemia
     Dosage: UNK
     Route: 065
  10. INDAPAMIDE [Interacting]
     Active Substance: INDAPAMIDE
     Indication: Hypertension
     Dosage: UNK UNK, QD, DAILY USE, THIAZIDE-LIKE DIURETIC
     Route: 065
  11. INDAPAMIDE [Interacting]
     Active Substance: INDAPAMIDE
     Indication: Product used for unknown indication
  12. VENLAFAXINE [Interacting]
     Active Substance: VENLAFAXINE HYDROCHLORIDE
     Indication: Depression
     Dosage: UNK
     Route: 065
  13. VENLAFAXINE [Interacting]
     Active Substance: VENLAFAXINE HYDROCHLORIDE
     Indication: Product used for unknown indication
     Dosage: UNK UNK, QD, DAILY USE, SNRI
     Route: 065
  14. INDOMETHACIN [Interacting]
     Active Substance: INDOMETHACIN
     Indication: Arthralgia
     Dosage: UNK
     Route: 065
  15. INDOMETHACIN [Interacting]
     Active Substance: INDOMETHACIN
     Indication: Product used for unknown indication
     Dosage: UNK UNK, QD, DAILY USE, NSAID
     Route: 065
  16. PERINDOPRIL [Interacting]
     Active Substance: PERINDOPRIL
     Indication: Hypertension
     Dosage: UNK
     Route: 065
  17. PERINDOPRIL [Interacting]
     Active Substance: PERINDOPRIL
     Indication: Myocardial ischaemia
     Dosage: UNK UNK, QD, DAILY USE, ACE INHIBITOR
     Route: 065
  18. PERINDOPRIL [Interacting]
     Active Substance: PERINDOPRIL
     Indication: Product used for unknown indication
  19. PANTOPRAZOLE [Interacting]
     Active Substance: PANTOPRAZOLE
     Indication: Gastrooesophageal reflux disease
     Dosage: UNK
     Route: 065
  20. PANTOPRAZOLE [Interacting]
     Active Substance: PANTOPRAZOLE
     Indication: Product used for unknown indication
     Dosage: UNK UNK, QD, DAILY USE,PPI
     Route: 065
  21. CLONAZEPAM [Interacting]
     Active Substance: CLONAZEPAM
     Indication: Depression
     Dosage: UNK
     Route: 065
  22. CLONAZEPAM [Interacting]
     Active Substance: CLONAZEPAM
     Indication: Product used for unknown indication
     Dosage: UNK UNK, QD, DAILY USE, LONG-ACTING BENZODIAZEPINE
     Route: 065
  23. AMLODIPINE BESYLATE\INDAPAMIDE\PERINDOPRIL ARGININE [Interacting]
     Active Substance: AMLODIPINE BESYLATE\INDAPAMIDE\PERINDOPRIL ARGININE
     Indication: Myocardial ischaemia
     Dosage: UNK UNK, QD, DAILY USE
     Route: 065
  24. AMLODIPINE BESYLATE\INDAPAMIDE\PERINDOPRIL ARGININE [Interacting]
     Active Substance: AMLODIPINE BESYLATE\INDAPAMIDE\PERINDOPRIL ARGININE
     Indication: Hypertension
     Dosage: UNK
     Route: 065
  25. AMLODIPINE BESYLATE\INDAPAMIDE\PERINDOPRIL ARGININE [Interacting]
     Active Substance: AMLODIPINE BESYLATE\INDAPAMIDE\PERINDOPRIL ARGININE
     Indication: Product used for unknown indication

REACTIONS (6)
  - Myocardial infarction [Unknown]
  - Drug interaction [Unknown]
  - Arrhythmia [Unknown]
  - Product prescribing issue [Unknown]
  - Treatment noncompliance [Unknown]
  - Off label use [Unknown]

NARRATIVE: CASE EVENT DATE: 20230201
